FAERS Safety Report 21195002 (Version 1)
Quarter: 2022Q3

REPORT INFORMATION
  Report Type: Spontaneous
  Country: GB (occurrence: GB)
  Receive Date: 20220810
  Receipt Date: 20220810
  Transmission Date: 20221026
  Serious: Yes (Hospitalization, Other)
  Sender: FDA-Public Use
  Company Number: GB-MHRA-MED-202208071949162550-ZRNYW

PATIENT

DRUGS (1)
  1. ALBUTEROL SULFATE [Suspect]
     Active Substance: ALBUTEROL SULFATE
     Indication: Chronic obstructive pulmonary disease
     Dosage: UNK
     Route: 065
     Dates: start: 20220805

REACTIONS (3)
  - Angina pectoris [Unknown]
  - Chest pain [Recovered/Resolved with Sequelae]
  - Illness [Recovered/Resolved with Sequelae]

NARRATIVE: CASE EVENT DATE: 20220805
